FAERS Safety Report 4982757-4 (Version None)
Quarter: 2006Q2

REPORT INFORMATION
  Report Type: 
  Country: None (occurrence: None)
  Receive Date: 20060425
  Receipt Date: 20051005
  Transmission Date: 20061013
  Serious: Yes (Hospitalization, Disabling)
  Sender: FDA-Public Use
  Company Number: US-MERCK-0510USA03852

PATIENT
  Age: 62 Year
  Sex: Male
  Weight: 81 kg

DRUGS (10)
  1. VIOXX [Suspect]
     Indication: ARTHRALGIA
     Route: 048
     Dates: start: 20030601, end: 20040601
  2. VIOXX [Suspect]
     Route: 048
     Dates: start: 20030601, end: 20040601
  3. ALTACE [Concomitant]
     Indication: HYPERTENSION
     Route: 065
     Dates: start: 19970901
  4. ATENOLOL [Concomitant]
     Indication: HYPERTENSION
     Route: 065
     Dates: start: 19970901
  5. FLOMAX [Concomitant]
     Route: 065
  6. LIPITOR [Concomitant]
     Indication: BLOOD CHOLESTEROL
     Route: 065
     Dates: start: 19970901
  7. PROSCAR [Concomitant]
     Route: 065
  8. CLARITIN [Concomitant]
     Indication: HYPERSENSITIVITY
     Route: 065
  9. ASPIRIN [Concomitant]
     Indication: PROPHYLAXIS
     Route: 065
     Dates: start: 19970901
  10. AVODART [Concomitant]
     Indication: PROSTATISM
     Route: 065

REACTIONS (9)
  - CHEST PAIN [None]
  - COLONIC POLYP [None]
  - CORONARY ARTERY OCCLUSION [None]
  - DIVERTICULUM [None]
  - DIVERTICULUM INTESTINAL [None]
  - HAEMORRHOIDS [None]
  - INFLUENZA LIKE ILLNESS [None]
  - MYOCARDIAL INFARCTION [None]
  - RASH [None]
